FAERS Safety Report 9265921 (Version 1)
Quarter: 2013Q2

REPORT INFORMATION
  Report Type: Spontaneous
  Country: US (occurrence: US)
  Receive Date: 20130501
  Receipt Date: 20130501
  Transmission Date: 20140414
  Serious: Yes (Life-Threatening, Other)
  Sender: FDA-Public Use
  Company Number: CHPA2013US007533

PATIENT
  Age: 42 Year
  Sex: Female

DRUGS (3)
  1. EXCEDRIN EXTRA STRENGTH [Suspect]
     Indication: HEADACHE
     Dosage: 3-4 CAPLETS, 4-6 X A DAY
     Route: 048
  2. EXCEDRIN EXTRA STRENGTH [Suspect]
     Indication: HEADACHE
     Dosage: 1-2 TABLETS, PRN
     Route: 048
  3. MORPHINE [Concomitant]
     Indication: HEADACHE
     Dosage: UNK, UNK

REACTIONS (3)
  - Gastric ulcer [Recovered/Resolved]
  - Impaired gastric emptying [Not Recovered/Not Resolved]
  - Eating disorder [Recovered/Resolved]
